FAERS Safety Report 5086766-9 (Version None)
Quarter: 2006Q3

REPORT INFORMATION
  Report Type: 
  Country: None (occurrence: None)
  Receive Date: 20060823
  Receipt Date: 20060612
  Transmission Date: 20061208
  Serious: Yes (Other)
  Sender: FDA-Public Use
  Company Number: 2006SE03851

PATIENT
  Age: 32 Year
  Sex: Male
  Weight: 95 kg

DRUGS (4)
  1. SEROQUEL [Suspect]
     Indication: SCHIZOPHRENIA
     Dosage: 200+0+0+300 MG
     Route: 048
     Dates: start: 20050922
  2. ABILIFY [Suspect]
     Indication: SCHIZOPHRENIA
     Route: 048
     Dates: start: 20050901
  3. CITADUR [Suspect]
     Indication: DEPRESSION
     Route: 048
     Dates: start: 20060328
  4. RISPERDAL [Suspect]
     Route: 048
     Dates: start: 20040922, end: 20050914

REACTIONS (2)
  - DYSKINESIA [None]
  - SENSORY DISTURBANCE [None]
